FAERS Safety Report 6553617-2 (Version None)
Quarter: 2010Q1

REPORT INFORMATION
  Report Type: 
  Country: None (occurrence: None)
  Receive Date: 20100127
  Receipt Date: 20100118
  Transmission Date: 20100710
  Serious: Yes (Other)
  Sender: FDA-Public Use
  Company Number: US-NOVOPROD-265135

PATIENT
  Age: 8 Year
  Sex: Female
  Weight: 20.1 kg

DRUGS (4)
  1. HUMAN GROWTH HORMONE, RECOMBINANT [Suspect]
     Indication: GROWTH HORMONE DEFICIENCY
     Dosage: .29 MG/KG, QW
     Dates: start: 20031002, end: 20040101
  2. HUMAN GROWTH HORMONE, RECOMBINANT [Suspect]
     Dosage: .15 MG/KG, QW ( FOR 1 MONTH AFTER REINTRODUCING)
     Dates: start: 20040202, end: 20040302
  3. HUMAN GROWTH HORMONE, RECOMBINANT [Suspect]
     Dosage: .29 MG/KG/WEEK
     Dates: start: 20040302
  4. NORDITROPIN [Suspect]
     Dosage: NOT SUSPECT PRODUCT

REACTIONS (1)
  - THYMUS ENLARGEMENT [None]
